FAERS Safety Report 8091981-6 (Version None)
Quarter: 2012Q1

REPORT INFORMATION
  Report Type: 
  Country: None (occurrence: None)
  Receive Date: 20120129
  Receipt Date: 20111109
  Transmission Date: 20120608
  Serious: Yes (Hospitalization)
  Sender: FDA-Public Use
  Company Number: US-ABBOTT-11P-163-0869252-00

PATIENT
  Sex: Female
  Weight: 56.296 kg

DRUGS (8)
  1. XANAX [Concomitant]
     Indication: PRODUCT USED FOR UNKNOWN INDICATION
  2. HUMIRA [Suspect]
     Indication: CROHN'S DISEASE
     Dosage: 160 MG LOADING DOSE
     Dates: start: 20111014, end: 20111014
  3. HUMIRA [Suspect]
     Dosage: LOADING DOSE 80MG
     Dates: start: 20111028
  4. PENTASA [Concomitant]
     Indication: PRODUCT USED FOR UNKNOWN INDICATION
     Dosage: 4 TABS QID
  5. ENTOCORT EC [Concomitant]
     Indication: PRODUCT USED FOR UNKNOWN INDICATION
     Dosage: 2 TABS DAILY FOR 6 WEEKS
  6. ZOLOFT [Concomitant]
     Indication: PRODUCT USED FOR UNKNOWN INDICATION
     Dosage: DAILY
  7. VICODIN [Concomitant]
     Indication: PRODUCT USED FOR UNKNOWN INDICATION
     Dosage: 5/500 PRN
  8. DOXEPIN [Concomitant]
     Indication: INSOMNIA
     Dosage: HS

REACTIONS (8)
  - OESOPHAGEAL INFECTION [None]
  - INCREASED TENDENCY TO BRUISE [None]
  - OROPHARYNGEAL PAIN [None]
  - FUNGAL OESOPHAGITIS [None]
  - ABDOMINAL PAIN [None]
  - CROHN'S DISEASE [None]
  - INJECTION SITE PAIN [None]
  - PYREXIA [None]
